FAERS Safety Report 25027044 (Version 2)
Quarter: 2025Q1

REPORT INFORMATION
  Report Type: Spontaneous
  Country: US (occurrence: US)
  Receive Date: 20250301
  Receipt Date: 20250318
  Transmission Date: 20250409
  Serious: Yes (Other)
  Sender: SANOFI AVENTIS
  Company Number: US-SA-2025SA056055

PATIENT
  Age: 81 Year
  Sex: Female
  Weight: 77.27 kg

DRUGS (24)
  1. PLAVIX [Suspect]
     Active Substance: CLOPIDOGREL BISULFATE
     Indication: Product used for unknown indication
     Dosage: QD (DAILY)
     Dates: start: 2024
  2. PLAVIX [Suspect]
     Active Substance: CLOPIDOGREL BISULFATE
  3. TREPROSTINIL [Suspect]
     Active Substance: TREPROSTINIL
     Indication: Hypertension
     Dosage: 64 UG, QID
     Route: 055
  4. TREPROSTINIL [Suspect]
     Active Substance: TREPROSTINIL
     Route: 055
     Dates: start: 20221222, end: 202412
  5. TYVASO DPI [Suspect]
     Active Substance: TREPROSTINIL
     Indication: Hypertension
     Route: 055
  6. WINREVAIR [Suspect]
     Active Substance: SOTATERCEPT-CSRK
     Dates: start: 2024
  7. FERRIC POLYSACCHARIDE COMPLEX [Concomitant]
     Active Substance: FERRIC POLYSACCHARIDE COMPLEX
  8. MACITENTAN\TADALAFIL [Concomitant]
     Active Substance: MACITENTAN\TADALAFIL
  9. FOLIC ACID [Concomitant]
     Active Substance: FOLIC ACID
  10. TADALAFIL [Concomitant]
     Active Substance: TADALAFIL
  11. ECOTRIN [Concomitant]
     Active Substance: ASPIRIN
  12. VITAMIN E [Concomitant]
     Active Substance: .ALPHA.-TOCOPHEROL
  13. CALCIUM [Concomitant]
     Active Substance: CALCIUM
  14. ATORVASTATIN CALCIUM [Concomitant]
     Active Substance: ATORVASTATIN CALCIUM
  15. ZYRTEC [Concomitant]
     Active Substance: CETIRIZINE HYDROCHLORIDE
  16. METOPROLOL SUCCINATE [Concomitant]
     Active Substance: METOPROLOL SUCCINATE
  17. POLYETHYLENE GLYCOL [Concomitant]
     Active Substance: POLYETHYLENE GLYCOL
  18. DILTIAZEM [Concomitant]
     Active Substance: DILTIAZEM
  19. O pur oxygen [Concomitant]
  20. VITAMIN B12 [Concomitant]
     Active Substance: CYANOCOBALAMIN
  21. DEXILANT [Concomitant]
     Active Substance: DEXLANSOPRAZOLE
  22. ESTRACE [Concomitant]
     Active Substance: ESTRADIOL
  23. RANEXA [Concomitant]
     Active Substance: RANOLAZINE
  24. FERROUS SULFATE [Concomitant]
     Active Substance: FERROUS SULFATE

REACTIONS (1)
  - Rectal haemorrhage [Not Recovered/Not Resolved]
